FAERS Safety Report 19430742 (Version 2)
Quarter: 2021Q3

REPORT INFORMATION
  Report Type: Spontaneous
  Country: US (occurrence: US)
  Receive Date: 20210617
  Receipt Date: 20210706
  Transmission Date: 20211014
  Serious: No
  Sender: FDA-Public Use
  Company Number: US-JNJFOC-20210631614

PATIENT
  Age: 26 Year
  Sex: Male

DRUGS (2)
  1. RILPIVIRINE [Suspect]
     Active Substance: RILPIVIRINE
     Indication: PRODUCT USED FOR UNKNOWN INDICATION
     Dosage: 3 ML (600MG?900MG/3ML)
     Route: 030
     Dates: start: 20210608
  2. CABOTEGRAVIR [Suspect]
     Active Substance: CABOTEGRAVIR
     Indication: PRODUCT USED FOR UNKNOWN INDICATION
     Route: 030
     Dates: start: 20210608

REACTIONS (12)
  - Confusional state [Unknown]
  - Dizziness [Unknown]
  - Clumsiness [Unknown]
  - Eye pruritus [Unknown]
  - Headache [Unknown]
  - Malaise [Unknown]
  - Condition aggravated [Unknown]
  - Fatigue [Unknown]
  - Eye swelling [Unknown]
  - Ocular hyperaemia [Unknown]
  - Myalgia [Unknown]
  - Pain [Unknown]

NARRATIVE: CASE EVENT DATE: 20210608
